FAERS Safety Report 9712931 (Version 1)
Quarter: 2013Q4

REPORT INFORMATION
  Report Type: Spontaneous
  Country: US (occurrence: US)
  Receive Date: 20131126
  Receipt Date: 20131126
  Transmission Date: 20140711
  Serious: No
  Sender: FDA-Public Use
  Company Number: US-BRISTOL-MYERS SQUIBB COMPANY-19367093

PATIENT
  Age: 66 Year
  Sex: Female
  Weight: 68.93 kg

DRUGS (4)
  1. BYDUREON [Suspect]
     Dates: start: 20130217
  2. PAROXETINE [Concomitant]
  3. ZIAC [Concomitant]
     Dosage: ZIAC WATER PILL
  4. CARVEDILOL [Concomitant]

REACTIONS (3)
  - Weight decreased [Recovered/Resolved]
  - Vomiting [Recovered/Resolved]
  - Diarrhoea [Recovered/Resolved]
